FAERS Safety Report 9052104 (Version 1)
Quarter: 2013Q1

REPORT INFORMATION
  Report Type: Spontaneous
  Country: US (occurrence: None)
  Receive Date: 20130131
  Receipt Date: 20130131
  Transmission Date: 20140127
  Serious: Yes (Hospitalization)
  Sender: FDA-Public Use
  Company Number: None

PATIENT
  Age: 64 Year
  Sex: Female
  Weight: 72.7 kg

DRUGS (8)
  1. EXELON PATCH [Suspect]
     Dosage: 9.5MG DAILY TOPICAL ?RECENT
  2. VITAMIN B12 [Concomitant]
  3. ASA [Concomitant]
  4. CENTRUM SILVER [Concomitant]
  5. HCTZ [Concomitant]
  6. VIT D [Concomitant]
  7. VIT B6 [Concomitant]
  8. TUMS [Concomitant]

REACTIONS (1)
  - Dizziness [None]
